FAERS Safety Report 14125675 (Version 2)
Quarter: 2017Q4

REPORT INFORMATION
  Report Type: Spontaneous
  Country: US (occurrence: US)
  Receive Date: 20171025
  Receipt Date: 20171115
  Transmission Date: 20180321
  Serious: No
  Sender: FDA-Public Use
  Company Number: US-GLAXOSMITHKLINE-US2017GSK162417

PATIENT
  Sex: Female

DRUGS (1)
  1. BENLYSTA [Suspect]
     Active Substance: BELIMUMAB
     Indication: SYSTEMIC LUPUS ERYTHEMATOSUS
     Dosage: UNK
     Route: 042

REACTIONS (10)
  - Adverse drug reaction [Unknown]
  - Mood swings [Unknown]
  - Malaise [Unknown]
  - Feeling hot [Unknown]
  - Gait disturbance [Unknown]
  - Impaired driving ability [Unknown]
  - Feeling cold [Unknown]
  - Drug intolerance [Unknown]
  - Drug effect increased [Unknown]
  - Pain [Unknown]
